FAERS Safety Report 10275834 (Version 3)
Quarter: 2014Q3

REPORT INFORMATION
  Report Type: Report from Study
  Country: US (occurrence: US)
  Receive Date: 20140703
  Receipt Date: 20140724
  Transmission Date: 20150326
  Serious: Yes (Hospitalization, Other)
  Sender: FDA-Public Use
  Company Number: US-GLENMARK GENERICS INC.-2014GMK009993

PATIENT
  Age: 76 Year
  Sex: Male
  Weight: 109.3 kg

DRUGS (62)
  1. BLINDED DICLOFENAC SODIUM [Suspect]
     Active Substance: DICLOFENAC SODIUM
     Indication: ACTINIC KERATOSIS
     Dosage: UNK, BID
     Route: 061
     Dates: start: 20140529, end: 20140618
  2. PLACEBO [Suspect]
     Active Substance: UNSPECIFIED INGREDIENT
     Dosage: UNK, BID
     Route: 061
     Dates: start: 20140607, end: 20140607
  3. BLINDED DICLOFENAC SODIUM [Suspect]
     Active Substance: DICLOFENAC SODIUM
     Dosage: UNK, BID
     Route: 061
     Dates: start: 20140608, end: 20140608
  4. SOLARAZE [Suspect]
     Active Substance: DICLOFENAC SODIUM
     Dosage: UNK, BID
     Route: 061
     Dates: start: 20140613, end: 20140613
  5. SOLARAZE [Suspect]
     Active Substance: DICLOFENAC SODIUM
     Dosage: UNK, BID
     Route: 061
     Dates: start: 20140615, end: 20140615
  6. PRESERVISION [Concomitant]
     Indication: SUPPLEMENTATION THERAPY
     Dosage: 1 DF, BID
     Route: 048
     Dates: start: 2012
  7. BLINDED DICLOFENAC SODIUM [Suspect]
     Active Substance: DICLOFENAC SODIUM
     Dosage: UNK, BID
     Route: 061
     Dates: start: 20140601, end: 20140601
  8. PLACEBO [Suspect]
     Active Substance: UNSPECIFIED INGREDIENT
     Dosage: UNK, BID
     Route: 061
     Dates: start: 20140605, end: 20140605
  9. BLINDED DICLOFENAC SODIUM [Suspect]
     Active Substance: DICLOFENAC SODIUM
     Dosage: UNK, BID
     Route: 061
     Dates: start: 20140618, end: 20140618
  10. TEMAZEPAM. [Concomitant]
     Active Substance: TEMAZEPAM
     Indication: INSOMNIA
     Dosage: 30 MG, QD
     Route: 048
     Dates: start: 20130218
  11. AMITRIPTYLINE [Concomitant]
     Active Substance: AMITRIPTYLINE
     Indication: SLEEP DISORDER
     Dosage: UNK, HS
     Route: 048
  12. GABAPENTIN. [Concomitant]
     Active Substance: GABAPENTIN
     Indication: PRODUCT USED FOR UNKNOWN INDICATION
     Dosage: 1 DF, HS
     Route: 048
  13. PLACEBO [Suspect]
     Active Substance: UNSPECIFIED INGREDIENT
     Dosage: UNK, BID
     Route: 061
     Dates: start: 20140601, end: 20140601
  14. SOLARAZE [Suspect]
     Active Substance: DICLOFENAC SODIUM
     Dosage: UNK, BID
     Route: 061
     Dates: start: 20140602, end: 20140602
  15. BLINDED DICLOFENAC SODIUM [Suspect]
     Active Substance: DICLOFENAC SODIUM
     Dosage: UNK, BID
     Route: 061
     Dates: start: 20140603, end: 20140603
  16. PLACEBO [Suspect]
     Active Substance: UNSPECIFIED INGREDIENT
     Dosage: UNK, BID
     Route: 061
     Dates: start: 20140603, end: 20140603
  17. PLACEBO [Suspect]
     Active Substance: UNSPECIFIED INGREDIENT
     Dosage: UNK, BID
     Route: 061
     Dates: start: 20140608, end: 20140608
  18. SOLARAZE [Suspect]
     Active Substance: DICLOFENAC SODIUM
     Dosage: UNK, BID
     Route: 061
     Dates: start: 20140618, end: 20140618
  19. FENOFIBRIC ACID. [Concomitant]
     Active Substance: FENOFIBRIC ACID
     Indication: HYPERLIPIDAEMIA
     Dosage: 135 MG, QD
     Route: 048
     Dates: start: 20100416
  20. ASPIRIN. [Concomitant]
     Active Substance: ASPIRIN
     Indication: PROPHYLAXIS
     Dosage: 81 MG, QD
     Route: 048
     Dates: start: 1994
  21. HYDROPHILIC [Concomitant]
     Indication: DRY SKIN PROPHYLAXIS
     Dosage: APPLY THIN LAYER, BID
     Route: 061
  22. BLINDED DICLOFENAC SODIUM [Suspect]
     Active Substance: DICLOFENAC SODIUM
     Dosage: UNK, BID
     Route: 061
     Dates: start: 20140602, end: 20140602
  23. SOLARAZE [Suspect]
     Active Substance: DICLOFENAC SODIUM
     Dosage: UNK, BID
     Route: 061
     Dates: start: 20140607, end: 20140607
  24. SOLARAZE [Suspect]
     Active Substance: DICLOFENAC SODIUM
     Dosage: UNK, BID
     Route: 061
     Dates: start: 20140608, end: 20140608
  25. SOLARAZE [Suspect]
     Active Substance: DICLOFENAC SODIUM
     Dosage: UNK, BID
     Route: 061
     Dates: start: 20140610, end: 20140610
  26. SOLARAZE [Suspect]
     Active Substance: DICLOFENAC SODIUM
     Dosage: UNK, BID
     Route: 061
     Dates: start: 20140612, end: 20140612
  27. BLINDED DICLOFENAC SODIUM [Suspect]
     Active Substance: DICLOFENAC SODIUM
     Dosage: UNK, BID
     Route: 061
     Dates: start: 20140613, end: 20140613
  28. PRASUGREL [Concomitant]
     Active Substance: PRASUGREL
     Indication: PROPHYLAXIS
     Dosage: 10 MG, QD
     Route: 048
     Dates: start: 20100416
  29. PRASUGREL [Concomitant]
     Active Substance: PRASUGREL
     Indication: THROMBOSIS
  30. PLACEBO [Suspect]
     Active Substance: UNSPECIFIED INGREDIENT
     Dosage: UNK, BID
     Route: 061
     Dates: start: 20140530, end: 20140530
  31. SOLARAZE [Suspect]
     Active Substance: DICLOFENAC SODIUM
     Dosage: UNK, BID
     Route: 061
     Dates: start: 20140601, end: 20140601
  32. PLACEBO [Suspect]
     Active Substance: UNSPECIFIED INGREDIENT
     Dosage: UNK, BID
     Route: 061
     Dates: start: 20140602, end: 20140602
  33. PLACEBO [Suspect]
     Active Substance: UNSPECIFIED INGREDIENT
     Dosage: UNK, BID
     Route: 061
     Dates: start: 20140604, end: 20140604
  34. BLINDED DICLOFENAC SODIUM [Suspect]
     Active Substance: DICLOFENAC SODIUM
     Dosage: UNK, BID
     Route: 061
     Dates: start: 20140605, end: 20140605
  35. BLINDED DICLOFENAC SODIUM [Suspect]
     Active Substance: DICLOFENAC SODIUM
     Dosage: UNK, BID
     Route: 061
     Dates: start: 20140610, end: 20140610
  36. PLACEBO [Suspect]
     Active Substance: UNSPECIFIED INGREDIENT
     Dosage: UNK, BID
     Route: 061
     Dates: start: 20140611, end: 20140611
  37. PLACEBO [Suspect]
     Active Substance: UNSPECIFIED INGREDIENT
     Dosage: UNK, BID
     Route: 061
     Dates: start: 20140613, end: 20140613
  38. PLACEBO [Suspect]
     Active Substance: UNSPECIFIED INGREDIENT
     Dosage: UNK, BID
     Route: 061
     Dates: start: 20140531, end: 20140531
  39. SOLARAZE [Suspect]
     Active Substance: DICLOFENAC SODIUM
     Dosage: UNK, BID
     Route: 061
     Dates: start: 20140531, end: 20140531
  40. SOLARAZE [Suspect]
     Active Substance: DICLOFENAC SODIUM
     Dosage: UNK, BID
     Route: 061
     Dates: start: 20140603, end: 20140603
  41. BLINDED DICLOFENAC SODIUM [Suspect]
     Active Substance: DICLOFENAC SODIUM
     Dosage: UNK, BID
     Route: 061
     Dates: start: 20140607, end: 20140607
  42. PLACEBO [Suspect]
     Active Substance: UNSPECIFIED INGREDIENT
     Dosage: UNK, BID
     Route: 061
     Dates: start: 20140610, end: 20140610
  43. BLINDED DICLOFENAC SODIUM [Suspect]
     Active Substance: DICLOFENAC SODIUM
     Dosage: UNK, BID
     Route: 061
     Dates: start: 20140611, end: 20140611
  44. BLINDED DICLOFENAC SODIUM [Suspect]
     Active Substance: DICLOFENAC SODIUM
     Dosage: UNK, BID
     Route: 061
     Dates: start: 20140612, end: 20140612
  45. PLACEBO [Suspect]
     Active Substance: UNSPECIFIED INGREDIENT
     Dosage: UNK, BID
     Route: 061
     Dates: start: 20140612, end: 20140612
  46. PLACEBO [Suspect]
     Active Substance: UNSPECIFIED INGREDIENT
     Dosage: UNK, BID
     Route: 061
     Dates: start: 20140615, end: 20140615
  47. SERTRALINE [Concomitant]
     Active Substance: SERTRALINE HYDROCHLORIDE
     Indication: AFFECTIVE DISORDER
     Dosage: 50 MG, QD
     Route: 048
     Dates: start: 2010
  48. LEVOTHYROXINE [Concomitant]
     Active Substance: LEVOTHYROXINE
     Indication: THYROID DISORDER
     Dosage: 1 DF, QD
     Route: 048
     Dates: start: 2010
  49. IPRATROPIUM [Concomitant]
     Active Substance: IPRATROPIUM
     Indication: HYPERSENSITIVITY
     Dosage: SPRAY 1 IN EACH NOSTRIL, BID
  50. ZOLPIDEM [Concomitant]
     Active Substance: ZOLPIDEM\ZOLPIDEM TARTRATE
     Indication: SLEEP DISORDER
     Dosage: 5 MG, HS
     Route: 048
  51. SOLARAZE [Suspect]
     Active Substance: DICLOFENAC SODIUM
     Indication: ACTINIC KERATOSIS
     Dosage: UNK, BID
     Route: 061
     Dates: start: 20140529, end: 20140618
  52. BLINDED DICLOFENAC SODIUM [Suspect]
     Active Substance: DICLOFENAC SODIUM
     Dosage: UNK, BID
     Route: 061
     Dates: start: 20140530, end: 20140530
  53. BLINDED DICLOFENAC SODIUM [Suspect]
     Active Substance: DICLOFENAC SODIUM
     Dosage: UNK, BID
     Route: 061
     Dates: start: 20140531, end: 20140531
  54. BLINDED DICLOFENAC SODIUM [Suspect]
     Active Substance: DICLOFENAC SODIUM
     Dosage: UNK, BID
     Route: 061
     Dates: start: 20140604, end: 20140604
  55. SOLARAZE [Suspect]
     Active Substance: DICLOFENAC SODIUM
     Dosage: UNK, BID
     Route: 061
     Dates: start: 20140605, end: 20140605
  56. OCUVITE [Concomitant]
     Active Substance: VITAMINS
     Indication: SUPPLEMENTATION THERAPY
     Dosage: 1 DF, QD
     Route: 048
     Dates: start: 2011
  57. PLACEBO [Suspect]
     Active Substance: UNSPECIFIED INGREDIENT
     Indication: ACTINIC KERATOSIS
     Dosage: UNK, BID
     Route: 061
     Dates: start: 20140529, end: 20140618
  58. SOLARAZE [Suspect]
     Active Substance: DICLOFENAC SODIUM
     Dosage: UNK, BID
     Route: 061
     Dates: start: 20140530, end: 20140530
  59. SOLARAZE [Suspect]
     Active Substance: DICLOFENAC SODIUM
     Dosage: UNK, BID
     Route: 061
     Dates: start: 20140604, end: 20140604
  60. SOLARAZE [Suspect]
     Active Substance: DICLOFENAC SODIUM
     Dosage: UNK, BID
     Route: 061
     Dates: start: 20140611, end: 20140611
  61. BLINDED DICLOFENAC SODIUM [Suspect]
     Active Substance: DICLOFENAC SODIUM
     Dosage: UNK, BID
     Route: 061
     Dates: start: 20140615, end: 20140615
  62. PLACEBO [Suspect]
     Active Substance: UNSPECIFIED INGREDIENT
     Dosage: UNK, BID
     Route: 061
     Dates: start: 20140618, end: 20140618

REACTIONS (6)
  - Atrial fibrillation [Recovered/Resolved]
  - Brain natriuretic peptide increased [Recovered/Resolved]
  - Presyncope [Recovered/Resolved]
  - Asthenia [Unknown]
  - Loss of consciousness [Unknown]
  - Dyspnoea paroxysmal nocturnal [Unknown]

NARRATIVE: CASE EVENT DATE: 20140615
